FAERS Safety Report 17207392 (Version 1)
Quarter: 2019Q4

REPORT INFORMATION
  Report Type: Spontaneous
  Country: BE (occurrence: BE)
  Receive Date: 20191227
  Receipt Date: 20191227
  Transmission Date: 20200122
  Serious: Yes (Hospitalization)
  Sender: FDA-Public Use
  Company Number: BE-MYLANLABS-2018M1033735

PATIENT
  Sex: Female

DRUGS (4)
  1. AMOXICILLINE                       /00249601/ [Suspect]
     Active Substance: AMOXICILLIN
     Indication: PRODUCT USED FOR UNKNOWN INDICATION
     Dosage: UNK
     Route: 048
  2. OMEPRAZOLE. [Suspect]
     Active Substance: OMEPRAZOLE
     Indication: PRODUCT USED FOR UNKNOWN INDICATION
     Dosage: UNK
  3. CLARITHROMYCIN. [Suspect]
     Active Substance: CLARITHROMYCIN
     Indication: PHARYNGITIS
     Dosage: ELLE A PRIS LA TOTALIT? DU TRAITEMENT JUSQU^AU DERNIER COMPRIM?.
  4. FLAGYL [Suspect]
     Active Substance: METRONIDAZOLE\METRONIDAZOLE HYDROCHLORIDE
     Indication: PRODUCT USED FOR UNKNOWN INDICATION
     Dosage: UNK

REACTIONS (7)
  - Insomnia [Unknown]
  - Language disorder [Unknown]
  - Constipation [Unknown]
  - Dry mouth [Unknown]
  - Nightmare [Unknown]
  - Dysgeusia [Unknown]
  - Myalgia [Unknown]
